FAERS Safety Report 6458249-2 (Version None)
Quarter: 2009Q4

REPORT INFORMATION
  Report Type: 
  Country: None (occurrence: None)
  Receive Date: 20091125
  Receipt Date: 20091119
  Transmission Date: 20100525
  Serious: Yes (Death)
  Sender: FDA-Public Use
  Company Number: CH-MERCK-0911CHE00006

PATIENT
  Age: 77 Year
  Sex: Female

DRUGS (7)
  1. NOROXIN [Suspect]
     Route: 048
     Dates: start: 20090928, end: 20091004
  2. ASPIRIN [Suspect]
     Route: 048
     Dates: start: 20090927, end: 20091004
  3. ACETAMINOPHEN [Suspect]
     Route: 048
     Dates: start: 20090927, end: 20091004
  4. METFORMIN HYDROCHLORIDE [Concomitant]
     Route: 048
  5. BENSERAZIDE HYDROCHLORIDE AND LEVODOPA [Concomitant]
     Indication: PARKINSON'S DISEASE
     Route: 048
  6. FOLIC ACID [Concomitant]
     Route: 065
     Dates: end: 20091007
  7. CYANOCOBALAMIN [Concomitant]
     Route: 065
     Dates: end: 20091007

REACTIONS (2)
  - PARKINSON'S DISEASE [None]
  - RASH MACULO-PAPULAR [None]
